FAERS Safety Report 5570371-1 (Version None)
Quarter: 2007Q4

REPORT INFORMATION
  Report Type: 
  Country: None (occurrence: None)
  Receive Date: 20071219
  Receipt Date: 20071219
  Transmission Date: 20080405
  Serious: No
  Sender: FDA-Public Use
  Company Number: None

PATIENT
  Age: 49 Year
  Sex: Male
  Weight: 90.7194 kg

DRUGS (18)
  1. FLUPHENAZINE [Suspect]
     Dosage: 25MG IM Q 2 WEEKS
     Route: 030
  2. ZOCOR [Concomitant]
  3. NORVASC [Concomitant]
  4. CLONAZEPAM [Concomitant]
  5. GABAPENTIN [Concomitant]
  6. ABILIFY [Concomitant]
  7. PERPHENAZINE [Concomitant]
  8. CALCIUM POLYCARBOPHIL [Concomitant]
  9. DOCUSATE [Concomitant]
  10. RANITIDINE HCL [Concomitant]
  11. AZMACORT [Concomitant]
  12. MELATONIN [Concomitant]
  13. DIPHENHYDRAMINE HCL [Concomitant]
  14. EPIPEN [Concomitant]
  15. CLONIDINE [Concomitant]
  16. LIPITOR [Concomitant]
  17. INVEGA [Concomitant]
  18. MIRTAZAPINE [Concomitant]

REACTIONS (3)
  - EXTRAPYRAMIDAL DISORDER [None]
  - PSYCHOTIC DISORDER [None]
  - REFUSAL OF TREATMENT BY PATIENT [None]
